FAERS Safety Report 9450210 (Version 2)
Quarter: 2013Q3

REPORT INFORMATION
  Report Type: Spontaneous
  Country: BR (occurrence: BR)
  Receive Date: 20130809
  Receipt Date: 20130820
  Transmission Date: 20140515
  Serious: Yes (Other)
  Sender: FDA-Public Use
  Company Number: BR-PFIZER INC-2013230093

PATIENT
  Sex: Female

DRUGS (1)
  1. FRONTAL [Suspect]
     Indication: INSOMNIA
     Dosage: 1 TO 2 TABLETS A DAY
     Dates: start: 2001

REACTIONS (12)
  - Wound [Not Recovered/Not Resolved]
  - Dependence [Unknown]
  - Drug clearance decreased [Unknown]
  - Abdominal distension [Not Recovered/Not Resolved]
  - Yellow skin [Not Recovered/Not Resolved]
  - Pigmentation disorder [Not Recovered/Not Resolved]
  - Spinal disorder [Unknown]
  - Depression [Unknown]
  - Muscular weakness [Unknown]
  - Muscular weakness [Unknown]
  - Arthropathy [Unknown]
  - Off label use [Not Recovered/Not Resolved]
